FAERS Safety Report 19409191 (Version 1)
Quarter: 2021Q2

REPORT INFORMATION
  Report Type: Spontaneous
  Country: NO (occurrence: NO)
  Receive Date: 20210614
  Receipt Date: 20210614
  Transmission Date: 20210717
  Serious: Yes (Death, Hospitalization, Other)
  Sender: FDA-Public Use
  Company Number: NO-BRISTOL-MYERS SQUIBB COMPANY-BMS-2021-053747

PATIENT
  Age: 57 Year
  Sex: Male

DRUGS (5)
  1. PEGASYS [Concomitant]
     Active Substance: PEGINTERFERON ALFA-2A
     Dosage: 90 UG, QW
     Route: 065
     Dates: start: 201902
  2. JAKAVI [Suspect]
     Active Substance: RUXOLITINIB
     Indication: POLYCYTHAEMIA VERA
     Dosage: 20 MG, BID
     Route: 065
     Dates: start: 201602, end: 202001
  3. JAKAVI [Suspect]
     Active Substance: RUXOLITINIB
     Indication: MYELOPROLIFERATIVE NEOPLASM
     Dosage: 10 MG, BID
     Route: 065
     Dates: start: 201510
  4. HYDROXYUREA. [Suspect]
     Active Substance: HYDROXYUREA
     Indication: PRODUCT USED FOR UNKNOWN INDICATION
     Dosage: 500 MG, QD
     Route: 065
     Dates: start: 201410, end: 201507
  5. PEGASYS [Concomitant]
     Active Substance: PEGINTERFERON ALFA-2A
     Indication: PRODUCT USED FOR UNKNOWN INDICATION
     Dosage: 25 UG, QW
     Route: 058

REACTIONS (18)
  - Death [Fatal]
  - Splenic rupture [Unknown]
  - Second primary malignancy [Unknown]
  - Myeloproliferative neoplasm [Unknown]
  - Haematoma [Unknown]
  - Portal vein thrombosis [Unknown]
  - Renal neoplasm [Unknown]
  - Myelosuppression [Unknown]
  - Blood creatinine increased [Unknown]
  - Anaemia [Unknown]
  - Renal impairment [Unknown]
  - IgA nephropathy [Unknown]
  - Renal cell carcinoma [Unknown]
  - Leukocytosis [Unknown]
  - Post procedural haemorrhage [Unknown]
  - Pulmonary embolism [Unknown]
  - Post procedural infection [Unknown]
  - Low density lipoprotein increased [Unknown]

NARRATIVE: CASE EVENT DATE: 201511
